FAERS Safety Report 5288638-3 (Version None)
Quarter: 2007Q2

REPORT INFORMATION
  Report Type: 
  Country: None (occurrence: None)
  Receive Date: 20070405
  Receipt Date: 20070326
  Transmission Date: 20071010
  Serious: Yes (Disabling, Other)
  Sender: FDA-Public Use
  Company Number: 2007GB00275

PATIENT
  Sex: Female
  Weight: 114.5 kg

DRUGS (6)
  1. QUETIAPINE FUMARATE [Suspect]
     Indication: BIPOLAR DISORDER
     Dosage: 250 MG QAM + 300 MG HS
     Route: 048
     Dates: start: 20041101
  2. DIAZEPAM [Concomitant]
  3. METHOTREXATE [Concomitant]
     Indication: PSORIATIC ARTHROPATHY
  4. CO-DYDRAMOL [Concomitant]
     Indication: PSORIATIC ARTHROPATHY
  5. FOLIC ACID [Concomitant]
  6. OMEPRAZOLE [Concomitant]

REACTIONS (4)
  - HEADACHE [None]
  - HYPERTENSION [None]
  - MIGRAINE [None]
  - PHOTOPHOBIA [None]
